FAERS Safety Report 6263486-6 (Version None)
Quarter: 2009Q3

REPORT INFORMATION
  Report Type: 
  Country: None (occurrence: None)
  Receive Date: 20090710
  Receipt Date: 20090330
  Transmission Date: 20100115
  Serious: No
  Sender: FDA-Public Use
  Company Number: A0769999A

PATIENT
  Age: 69 Year
  Sex: Female
  Weight: 66.6 kg

DRUGS (4)
  1. TYKERB [Suspect]
     Indication: BREAST CANCER
     Dosage: 5TAB PER DAY
     Route: 048
     Dates: start: 20090218
  2. GEMZAR [Concomitant]
     Indication: BREAST CANCER
     Dates: start: 20090210
  3. STOOL SOFTENER [Concomitant]
  4. ZOMETA [Concomitant]

REACTIONS (5)
  - FATIGUE [None]
  - MUSCULAR WEAKNESS [None]
  - NAIL DISORDER [None]
  - NAUSEA [None]
  - ONYCHOCLASIS [None]
